FAERS Safety Report 11872483 (Version 1)
Quarter: 2015Q4

REPORT INFORMATION
  Report Type: Spontaneous
  Country: FR (occurrence: FR)
  Receive Date: 20151228
  Receipt Date: 20151228
  Transmission Date: 20160305
  Serious: Yes (Other)
  Sender: FDA-Public Use
  Company Number: FR-PFIZER INC-2015466512

PATIENT
  Age: 54 Year
  Sex: Female

DRUGS (4)
  1. EFFEXOR LP [Suspect]
     Active Substance: VENLAFAXINE HYDROCHLORIDE
     Indication: DEPRESSION
     Dosage: UNK
     Route: 048
     Dates: start: 2014
  2. EFFEXOR LP [Suspect]
     Active Substance: VENLAFAXINE HYDROCHLORIDE
     Dosage: 150 MG, 1X/DAY
     Route: 048
     Dates: start: 2015, end: 2015
  3. EFFEXOR LP [Suspect]
     Active Substance: VENLAFAXINE HYDROCHLORIDE
     Dosage: GRADUALLY DECREASED
     Route: 048
     Dates: start: 20150828, end: 20150905
  4. LYSANXIA [Concomitant]
     Active Substance: PRAZEPAM
     Dosage: 1 DF IN THE MORNING AND 2 DF IN THE EVENING

REACTIONS (4)
  - Epistaxis [Unknown]
  - Headache [Unknown]
  - Hypertension [Recovered/Resolved]
  - Hypopnoea [Unknown]

NARRATIVE: CASE EVENT DATE: 2015
